FAERS Safety Report 10227635 (Version 1)
Quarter: 2014Q2

REPORT INFORMATION
  Report Type: Spontaneous
  Country: US (occurrence: None)
  Receive Date: 20140609
  Receipt Date: 20140609
  Transmission Date: 20141212
  Serious: No
  Sender: FDA-Public Use
  Company Number: None

PATIENT
  Age: 69 Year
  Sex: Female
  Weight: 74.84 kg

DRUGS (1)
  1. TRAMADOL HCI [Suspect]
     Indication: BACK PAIN
     Route: 048
     Dates: start: 20130830, end: 20130830

REACTIONS (6)
  - Influenza like illness [None]
  - Chills [None]
  - Cold sweat [None]
  - Dizziness [None]
  - Nausea [None]
  - Vomiting [None]
